FAERS Safety Report 6285252-8 (Version None)
Quarter: 2009Q3

REPORT INFORMATION
  Report Type: 
  Country: None (occurrence: None)
  Receive Date: 20090727
  Receipt Date: 20090724
  Transmission Date: 20100115
  Serious: Yes (Death)
  Sender: FDA-Public Use
  Company Number: JP-JNJFOC-20090708046

PATIENT
  Age: 65 Year
  Sex: Male

DRUGS (7)
  1. ITRIZOLE [Suspect]
     Indication: PNEUMONIA
     Route: 041
  2. PREDNISOLONE [Concomitant]
     Route: 042
  3. BACTRAMIN [Concomitant]
     Dosage: 5DF
     Route: 042
  4. ELASPOL [Concomitant]
     Route: 042
  5. REMINARON [Concomitant]
     Route: 042
  6. MINOCYCLINE HYDROCHLORIDE [Concomitant]
     Route: 042
  7. HABEKACIN [Concomitant]
     Route: 042

REACTIONS (1)
  - RESPIRATORY FAILURE [None]
